FAERS Safety Report 8139721-6 (Version None)
Quarter: 2012Q1

REPORT INFORMATION
  Report Type: 
  Country: None (occurrence: None)
  Receive Date: 20120215
  Receipt Date: 20120213
  Transmission Date: 20120608
  Serious: Yes (Hospitalization)
  Sender: FDA-Public Use
  Company Number: PHHO2012LT001933

PATIENT
  Sex: Female
  Weight: 99 kg

DRUGS (2)
  1. TASIGNA [Suspect]
     Indication: CHRONIC MYELOID LEUKAEMIA
     Dosage: 300 MG, BID
     Dates: start: 20101029
  2. KALII CHLORIDUM [Concomitant]
     Dosage: 750 MG, TID
     Dates: start: 20101129

REACTIONS (1)
  - METRORRHAGIA [None]
